FAERS Safety Report 22720342 (Version 3)
Quarter: 2024Q1

REPORT INFORMATION
  Report Type: Other
  Country: PL (occurrence: PL)
  Receive Date: 20230719
  Receipt Date: 20240212
  Transmission Date: 20240409
  Serious: Yes (Other)
  Sender: FDA-Public Use
  Company Number: PL-DEXPHARM-20231645

PATIENT
  Age: 10 Year
  Weight: 30 kg

DRUGS (8)
  1. SULFAMETHOXAZOLE\TRIMETHOPRIM [Concomitant]
     Active Substance: SULFAMETHOXAZOLE\TRIMETHOPRIM
     Dosage: NA
  2. ACYCLOVIR [Concomitant]
     Active Substance: ACYCLOVIR
     Dosage: NA
  3. MYCOPHENOLATE MOFETIL [Concomitant]
     Active Substance: MYCOPHENOLATE MOFETIL
     Dosage: NA
  4. OMEPRAZOLE [Interacting]
     Active Substance: OMEPRAZOLE
     Dosage: NA
  5. POSACONAZOLE [Interacting]
     Active Substance: POSACONAZOLE
     Indication: Antifungal prophylaxis
     Dosage: NA
  6. Methyloprednisolone [Concomitant]
     Dosage: NA
  7. LEVOTHYROXINE [Concomitant]
     Active Substance: LEVOTHYROXINE\LEVOTHYROXINE SODIUM
     Dosage: NA
  8. URSODIOL [Concomitant]
     Active Substance: URSODIOL
     Dosage: NA

REACTIONS (2)
  - Drug interaction [Unknown]
  - Drug level decreased [Unknown]
